FAERS Safety Report 6491140-4 (Version None)
Quarter: 2009Q4

REPORT INFORMATION
  Report Type: 
  Country: None (occurrence: None)
  Receive Date: 20091207
  Receipt Date: 20091120
  Transmission Date: 20100525
  Serious: No
  Sender: FDA-Public Use
  Company Number: 2009AL007485

PATIENT
  Age: 76 Year
  Sex: Male

DRUGS (4)
  1. DICLOFENAC SODIUM [Suspect]
     Indication: BACK PAIN
     Dosage: 75 MG;QD;PO
     Route: 048
  2. PARALGIN FORTE [Concomitant]
  3. BLOCADREN [Concomitant]
  4. DIOVAN CAP [Concomitant]

REACTIONS (5)
  - ABDOMINAL PAIN UPPER [None]
  - DIARRHOEA [None]
  - DUODENAL ULCER PERFORATION [None]
  - MELAENA [None]
  - PERITONITIS [None]
